FAERS Safety Report 5409536-8 (Version None)
Quarter: 2007Q3

REPORT INFORMATION
  Report Type: 
  Country: None (occurrence: None)
  Receive Date: 20070808
  Receipt Date: 20070808
  Transmission Date: 20080115
  Serious: Yes (Hospitalization)
  Sender: FDA-Public Use
  Company Number: None

PATIENT
  Age: 64 Year
  Sex: Male

DRUGS (2)
  1. CARBOPLATIN [Suspect]
     Indication: SQUAMOUS CELL CARCINOMA
     Dosage: 400MG ONCE IV
     Route: 042
     Dates: start: 20070424
  2. ETOPOSIDE [Suspect]
     Dosage: 185MG EVERY DAY IV
     Route: 042
     Dates: start: 20070424, end: 20070428

REACTIONS (4)
  - DEHYDRATION [None]
  - GASTRITIS [None]
  - NAUSEA [None]
  - VOMITING [None]
